FAERS Safety Report 5067426-7 (Version None)
Quarter: 2006Q3

REPORT INFORMATION
  Report Type: 
  Country: None (occurrence: None)
  Receive Date: 20060726
  Receipt Date: 20060713
  Transmission Date: 20061208
  Serious: Yes (Life-Threatening, Other)
  Sender: FDA-Public Use
  Company Number: 6024213

PATIENT
  Age: 77 Year
  Sex: Female

DRUGS (6)
  1. CONCOR 5 PLUS (HYDROCHLOROTHIAZIDE, BISOPROLOL FUMARATE) [Suspect]
     Indication: HYPERTENSION
     Dosage: 5 / 12,5 ORAL
     Route: 048
     Dates: start: 20031201
  2. PANTOPRAZOLE SODIUM [Suspect]
     Indication: ABDOMINAL PAIN UPPER
     Dosage: 20 MG (20 MG,1 IN 1 D) ORAL
     Route: 048
     Dates: start: 20051122
  3. AMLODIPINE [Suspect]
     Indication: HYPERTENSION
     Dosage: 10 MG (5 MG, 2 IN 1 D) ORAL
     Route: 048
     Dates: start: 20051103
  4. NEDOLON P (CODEINE PHOSPHATE, PARACETAMOL) [Concomitant]
  5. TRAMADOL HCL [Concomitant]
  6. ANALGESICS [Concomitant]

REACTIONS (8)
  - ABDOMINAL PAIN [None]
  - CARDIOVASCULAR DISORDER [None]
  - INSOMNIA [None]
  - INTENSIVE CARE [None]
  - NAUSEA [None]
  - TREATMENT NONCOMPLIANCE [None]
  - VOMITING [None]
  - WEIGHT DECREASED [None]
